FAERS Safety Report 4344769-3 (Version None)
Quarter: 2004Q2

REPORT INFORMATION
  Report Type: 
  Country: None (occurrence: None)
  Receive Date: 20040423
  Receipt Date: 20030619
  Transmission Date: 20050107
  Serious: No
  Sender: FDA-Public Use
  Company Number: US-GLAXOSMITHKLINE-A0413126A

PATIENT
  Age: 73 Year
  Sex: Male

DRUGS (4)
  1. LEUKERAN [Suspect]
     Dosage: 10MG MONTHLY
     Route: 048
     Dates: start: 20030401
  2. GLYBURIDE [Concomitant]
  3. DIOVAN [Concomitant]
  4. ASPIRIN [Concomitant]

REACTIONS (3)
  - ARTHRALGIA [None]
  - NASOPHARYNGITIS [None]
  - PHARYNGOLARYNGEAL PAIN [None]
